FAERS Safety Report 7775331-8 (Version None)
Quarter: 2011Q3

REPORT INFORMATION
  Report Type: 
  Country: None (occurrence: None)
  Receive Date: 20110921
  Receipt Date: 20110908
  Transmission Date: 20111222
  Serious: Yes (Other)
  Sender: FDA-Public Use
  Company Number: TPA2011A05481

PATIENT
  Age: 81 Year
  Sex: Male

DRUGS (15)
  1. TRAVATAN [Concomitant]
  2. ALPHAGAN (BRIMONIDINE)(EYE DROPS) [Concomitant]
  3. GLIPIZIDE [Concomitant]
  4. WARFARIN SODIUM [Concomitant]
  5. JANUVIA [Concomitant]
  6. EXELON [Concomitant]
  7. ENALAPRIL MALEATE [Concomitant]
  8. MULTIPLE VITAMINS (ERGOCALCIFEROL, ASCORBIC ACID, TOCOPHEROL, FOLIC AC [Concomitant]
  9. GLUCOSAMINE(GLUCOSAMINE) [Concomitant]
  10. LOMOTIL [Concomitant]
  11. OMEGA-3-ACID ETHYL ESTERS (LOVAZA) [Concomitant]
  12. ACTOS [Suspect]
     Indication: TYPE 2 DIABETES MELLITUS
     Dosage: 30 MG, 1 IN 1 D, PER ORAL
     Route: 048
     Dates: start: 20070708, end: 20080213
  13. PROSCAR [Concomitant]
  14. NAMENDA [Concomitant]
  15. VASOTEC [Concomitant]

REACTIONS (1)
  - BLADDER TRANSITIONAL CELL CARCINOMA [None]
